FAERS Safety Report 9142754 (Version 1)
Quarter: 2013Q1

REPORT INFORMATION
  Report Type: Spontaneous
  Country: HR (occurrence: HR)
  Receive Date: 20130306
  Receipt Date: 20130306
  Transmission Date: 20140127
  Serious: Yes (Life-Threatening, Other)
  Sender: FDA-Public Use
  Company Number: HR-JNJFOC-20130216064

PATIENT
  Age: 28 Year
  Sex: Female

DRUGS (1)
  1. CILEST [Suspect]
     Indication: ORAL CONTRACEPTION
     Route: 048
     Dates: start: 2005, end: 2013

REACTIONS (3)
  - Deep vein thrombosis [Not Recovered/Not Resolved]
  - Pain in extremity [Not Recovered/Not Resolved]
  - Oedema peripheral [Not Recovered/Not Resolved]
